FAERS Safety Report 12684707 (Version 2)
Quarter: 2016Q3

REPORT INFORMATION
  Report Type: Spontaneous
  Country: JP (occurrence: JP)
  Receive Date: 20160825
  Receipt Date: 20160906
  Transmission Date: 20161109
  Serious: Yes (Other)
  Sender: FDA-Public Use
  Company Number: JP-SA-2016SA151649

PATIENT
  Age: 83 Year
  Sex: Female

DRUGS (1)
  1. DELLEGRA [Suspect]
     Active Substance: FEXOFENADINE HYDROCHLORIDE\PSEUDOEPHEDRINE HYDROCHLORIDE
     Route: 048

REACTIONS (1)
  - Dementia [Unknown]
